FAERS Safety Report 9292278 (Version 3)
Quarter: 2013Q3

REPORT INFORMATION
  Report Type: Spontaneous
  Country: JP (occurrence: JP)
  Receive Date: 20130516
  Receipt Date: 20130826
  Transmission Date: 20140515
  Serious: Yes (Hospitalization, Other)
  Sender: FDA-Public Use
  Company Number: PHHY2013JP047372

PATIENT
  Age: 70 Year
  Sex: Female
  Weight: 53 kg

DRUGS (11)
  1. RITALIN [Suspect]
     Indication: NARCOLEPSY
     Dosage: 40 MG, DAILY
     Route: 048
  2. PLAVIX [Concomitant]
     Indication: CEREBRAL INFARCTION
     Dosage: UNK UKN, UNK
     Route: 048
  3. BAYASPIRIN [Concomitant]
     Indication: PROPHYLAXIS
     Dosage: UNK UKN, UNK
     Route: 048
  4. GLORIAMIN [Concomitant]
     Dosage: UNK UKN, UNK
     Route: 048
     Dates: start: 20130330
  5. POROSAVE [Concomitant]
     Dosage: UNK UKN, UNK
     Route: 048
     Dates: start: 20130408
  6. METHYCOOL [Concomitant]
     Dosage: UNK UKN, UNK
     Route: 048
     Dates: start: 20130330
  7. LOXONIN [Concomitant]
     Dosage: UNK UKN, UNK
     Route: 048
     Dates: start: 20130330, end: 20130412
  8. LOXONIN [Concomitant]
     Dosage: UNK
     Route: 062
     Dates: start: 20130330
  9. ADOFEED [Concomitant]
     Dosage: UNK UKN, UNK
     Route: 062
     Dates: start: 20130408
  10. ELCITONIN [Concomitant]
     Dosage: UNK UKN, UNK
     Route: 042
     Dates: start: 20130409
  11. SALSOROITIN [Concomitant]
     Dosage: UNK UKN, UNK
     Route: 042
     Dates: start: 20130408, end: 20130414

REACTIONS (5)
  - Cerebral infarction [Not Recovered/Not Resolved]
  - Thoracic vertebral fracture [Not Recovered/Not Resolved]
  - Fall [Not Recovered/Not Resolved]
  - Pain [Unknown]
  - Back injury [Unknown]
